FAERS Safety Report 6599758-5 (Version None)
Quarter: 2010Q1

REPORT INFORMATION
  Report Type: 
  Country: None (occurrence: None)
  Receive Date: 20100212
  Receipt Date: 20100125
  Transmission Date: 20100710
  Serious: No
  Sender: FDA-Public Use
  Company Number: 2010-00080

PATIENT
  Age: 42 Year
  Sex: Female
  Weight: 81.6475 kg

DRUGS (6)
  1. ZICAM COLD REMEDY ZAVORS [Suspect]
     Indication: NASOPHARYNGITIS
     Dosage: SPORADIC,4 MONTHS
  2. LEVOXYL [Concomitant]
  3. SEROQUEL [Concomitant]
  4. TOPAMAX [Concomitant]
  5. WELLBUTRIN [Concomitant]
  6. MULTI-VITAMIN [Concomitant]

REACTIONS (1)
  - AGEUSIA [None]
